FAERS Safety Report 16781005 (Version 1)
Quarter: 2019Q3

REPORT INFORMATION
  Report Type: Spontaneous
  Country: JP (occurrence: JP)
  Receive Date: 20190906
  Receipt Date: 20190906
  Transmission Date: 20191005
  Serious: Yes (Death)
  Sender: FDA-Public Use
  Company Number: JP-ACTELION-A-CH2019-195108

PATIENT
  Age: 17 Year
  Sex: Male

DRUGS (4)
  1. BERAPROST [Concomitant]
     Active Substance: BERAPROST
  2. AMBRISENTAN [Concomitant]
     Active Substance: AMBRISENTAN
  3. SILDENAFIL. [Concomitant]
     Active Substance: SILDENAFIL
  4. EPOPROSTENOL ACT [Suspect]
     Active Substance: EPOPROSTENOL
     Indication: PULMONARY ARTERIAL HYPERTENSION
     Route: 042

REACTIONS (1)
  - Death [Fatal]
